FAERS Safety Report 6140999-9 (Version None)
Quarter: 2009Q2

REPORT INFORMATION
  Report Type: 
  Country: None (occurrence: None)
  Receive Date: 20090402
  Receipt Date: 20090327
  Transmission Date: 20091009
  Serious: Yes (Hospitalization, Other)
  Sender: FDA-Public Use
  Company Number: US-ASTRAZENECA-2008UW17342

PATIENT
  Age: 51 Year
  Sex: Male
  Weight: 117.9 kg

DRUGS (4)
  1. SEROQUEL [Suspect]
     Indication: BIPOLAR DISORDER
     Route: 048
     Dates: start: 20030101, end: 20060926
  2. ZANTAC [Concomitant]
     Dates: start: 20000101
  3. ABILIFY [Concomitant]
     Dates: start: 20080101
  4. PAXIL [Concomitant]
     Dates: start: 20060101

REACTIONS (6)
  - BLOOD CHOLESTEROL INCREASED [None]
  - BLOOD TRIGLYCERIDES INCREASED [None]
  - CARDIOVASCULAR DISORDER [None]
  - DIABETES MELLITUS [None]
  - HYPERGLYCAEMIA [None]
  - SYNCOPE [None]
